FAERS Safety Report 17823096 (Version 3)
Quarter: 2020Q2

REPORT INFORMATION
  Report Type: Report from Study
  Country: US (occurrence: US)
  Receive Date: 20200526
  Receipt Date: 20200619
  Transmission Date: 20200714
  Serious: Yes (Hospitalization, Other)
  Sender: FDA-Public Use
  Company Number: NVSC2020US120186

PATIENT
  Age: 19 Year
  Sex: Female
  Weight: 59.8 kg

DRUGS (7)
  1. TRAMETINIB [Suspect]
     Active Substance: TRAMETINIB
     Indication: MALIGNANT MELANOMA
     Dosage: 30 MG
     Route: 048
     Dates: start: 20200303, end: 20200419
  2. MEGESTROL [Concomitant]
     Active Substance: MEGESTROL
     Indication: PRODUCT USED FOR UNKNOWN INDICATION
     Dosage: UNK
     Route: 065
     Dates: end: 20200530
  3. TRAMETINIB [Suspect]
     Active Substance: TRAMETINIB
     Dosage: 27 MG
     Route: 048
     Dates: start: 20200514
  4. COMPARATOR HYDROXYCHLOROQUINE SULFATE [Suspect]
     Active Substance: HYDROXYCHLOROQUINE SULFATE
     Dosage: 8750 MG
     Route: 048
     Dates: start: 20200514
  5. TRAMETINIB [Suspect]
     Active Substance: TRAMETINIB
     Dosage: 39 MG
     Route: 048
     Dates: end: 20200522
  6. COMPARATOR HYDROXYCHLOROQUINE SULFATE [Suspect]
     Active Substance: HYDROXYCHLOROQUINE SULFATE
     Dosage: 11475 MG
     Route: 048
     Dates: end: 20200522
  7. COMPARATOR HYDROXYCHLOROQUINE SULFATE [Suspect]
     Active Substance: HYDROXYCHLOROQUINE SULFATE
     Indication: MALIGNANT MELANOMA
     Dosage: 1000 MG
     Route: 048
     Dates: start: 20200303, end: 20200419

REACTIONS (4)
  - Ejection fraction decreased [Unknown]
  - Seizure [Recovered/Resolved]
  - Decreased appetite [Unknown]
  - Fatigue [Unknown]

NARRATIVE: CASE EVENT DATE: 20200420
